FAERS Safety Report 6732834-2 (Version None)
Quarter: 2010Q2

REPORT INFORMATION
  Report Type: 
  Country: None (occurrence: None)
  Receive Date: 20100519
  Receipt Date: 20100506
  Transmission Date: 20101027
  Serious: Yes (Hospitalization, Disabling, Other)
  Sender: FDA-Public Use
  Company Number: US-ELI_LILLY_AND_COMPANY-US200911006364

PATIENT
  Sex: Male
  Weight: 79.819 kg

DRUGS (5)
  1. ZYPREXA [Suspect]
     Dosage: 10 MG, EACH EVENING
     Dates: start: 20020101
  2. ZYPREXA [Suspect]
     Dosage: 1 D/F, UNK
     Route: 065
  3. ABILIFY [Concomitant]
     Dosage: 10 MG, DAILY (1/D)
     Dates: start: 20050101
  4. TRAZODONE HCL [Concomitant]
     Indication: INSOMNIA
     Dosage: 100 MG, AS NEEDED
  5. CITALOPRAM HYDROBROMIDE [Concomitant]
     Dosage: 20 MG, DAILY (1/D)

REACTIONS (7)
  - DIABETES MELLITUS [None]
  - HYPOGLYCAEMIA [None]
  - ISCHAEMIC NEPHROPATHY [None]
  - MYOCARDIAL ISCHAEMIA [None]
  - NEUROPATHY PERIPHERAL [None]
  - RENAL FAILURE CHRONIC [None]
  - WEIGHT INCREASED [None]
